FAERS Safety Report 16550688 (Version 1)
Quarter: 2019Q3

REPORT INFORMATION
  Report Type: Spontaneous
  Country: US (occurrence: US)
  Receive Date: 20190709
  Receipt Date: 20190709
  Transmission Date: 20191004
  Serious: Yes (Hospitalization)
  Sender: FDA-Public Use
  Company Number: None

PATIENT
  Age: 82 Year
  Sex: Male

DRUGS (7)
  1. METHOTREXATE. [Concomitant]
     Active Substance: METHOTREXATE
     Dates: start: 20190709
  2. LOSARTAN. [Concomitant]
     Active Substance: LOSARTAN
     Dates: start: 20190709
  3. CALCIUM [Concomitant]
     Active Substance: CALCIUM
     Dates: start: 20190709
  4. ASPIRIN. [Concomitant]
     Active Substance: ASPIRIN
     Dates: start: 20190709
  5. FOLIC ACID. [Concomitant]
     Active Substance: FOLIC ACID
     Dates: start: 20190709
  6. VITAMIN D3 [Concomitant]
     Active Substance: CHOLECALCIFEROL
     Dates: start: 20190709
  7. ENBREL [Suspect]
     Active Substance: ETANERCEPT
     Indication: RHEUMATOID ARTHRITIS
     Dosage: ?          OTHER FREQUENCY:ONCE A WEEK;?
     Route: 058
     Dates: start: 20180131

REACTIONS (2)
  - Therapy cessation [None]
  - Heart valve operation [None]
